FAERS Safety Report 22073287 (Version 1)
Quarter: 2023Q1

REPORT INFORMATION
  Report Type: Spontaneous
  Country: IN (occurrence: None)
  Receive Date: 20230308
  Receipt Date: 20230308
  Transmission Date: 20230417
  Serious: Yes (Hospitalization, Other)
  Sender: FDA-Public Use
  Company Number: IN-MICRO LABS LIMITED-ML2023-01279

PATIENT
  Age: 23 Year
  Sex: Female
  Weight: 50 kg

DRUGS (2)
  1. GLIMEPIRIDE [Suspect]
     Active Substance: GLIMEPIRIDE
     Indication: Product used for unknown indication
  2. METFORMIN [Suspect]
     Active Substance: METFORMIN HYDROCHLORIDE
     Indication: Product used for unknown indication

REACTIONS (7)
  - Generalised tonic-clonic seizure [Unknown]
  - Hypoxia [Unknown]
  - Lactic acidosis [Unknown]
  - Somnolence [Unknown]
  - Hypoglycaemia [Recovered/Resolved]
  - Loss of consciousness [Unknown]
  - Overdose [Unknown]
